FAERS Safety Report 8563186 (Version 3)
Quarter: 2014Q1

REPORT INFORMATION
  Report Type: Spontaneous
  Country: TW (occurrence: TW)
  Receive Date: 20120515
  Receipt Date: 20140224
  Transmission Date: 20141002
  Serious: Yes (Death, Hospitalization)
  Sender: FDA-Public Use
  Company Number: PHHY2012TW040460

PATIENT
  Age: 49 Year
  Sex: Female

DRUGS (3)
  1. CYCLOPHOSPHAMIDE [Suspect]
     Indication: BREAST CANCER STAGE II
     Dosage: 100 MG, UNK
     Dates: start: 200803
  2. EPIRUBICIN [Suspect]
     Indication: BREAST CANCER STAGE II
     Dates: start: 200803
  3. 5-FLUOROURACIL [Suspect]
     Indication: BREAST CANCER STAGE II
     Dates: start: 200803

REACTIONS (13)
  - Death [Fatal]
  - Multi-organ failure [Unknown]
  - Pneumonia [Unknown]
  - Septic shock [Unknown]
  - B precursor type acute leukaemia [Unknown]
  - Pancytopenia [Unknown]
  - Pyrexia [Unknown]
  - Asthenia [Unknown]
  - Decreased appetite [Unknown]
  - Leukocytosis [Unknown]
  - Dizziness [Unknown]
  - Lymphocytosis [Unknown]
  - Anaemia [Unknown]
